FAERS Safety Report 22219098 (Version 1)
Quarter: 2023Q2

REPORT INFORMATION
  Report Type: Spontaneous
  Country: CA (occurrence: CA)
  Receive Date: 20230417
  Receipt Date: 20230417
  Transmission Date: 20230721
  Serious: Yes (Hospitalization, Other)
  Sender: FDA-Public Use
  Company Number: CA-ORGANON-O2212CAN000373

PATIENT
  Age: 46 Year
  Sex: Female

DRUGS (45)
  1. SINGULAIR [Interacting]
     Active Substance: MONTELUKAST SODIUM
     Indication: Product used for unknown indication
     Dosage: 10.0 MILLIGRAM, 1 EVERY 1 DAYS, DOSAGE FORM: NOT SPECIFIED
     Route: 065
  2. BILASTINE [Interacting]
     Active Substance: BILASTINE
     Indication: Chronic spontaneous urticaria
     Dosage: 2.0 MILLIGRAM, 2 EVERY 1 DAYS
     Route: 065
  3. BILASTINE [Interacting]
     Active Substance: BILASTINE
     Dosage: 1.0 DOSAGE FORM, 1 EVERY 1 DAYS
     Route: 048
  4. BILASTINE [Interacting]
     Active Substance: BILASTINE
     Dosage: 1.0 DOSAGE FORM, 1 EVERY 1 DAYS
     Route: 048
  5. CETIRIZINE [Interacting]
     Active Substance: CETIRIZINE HYDROCHLORIDE
     Indication: Product used for unknown indication
     Dosage: 10 MILLIGRAM, 1 EVERY 1 DAYS, DOSAGE FORM NOT SPECIFIED
     Route: 065
  6. CLARITHROMYCIN [Interacting]
     Active Substance: CLARITHROMYCIN
     Indication: Chronic spontaneous urticaria
     Dosage: 1.0 DOSAGE FORM, 1 EVERY 1 DAYS, DOSAGE FORM NOT SPECIFIED
     Route: 048
  7. CLARITHROMYCIN [Interacting]
     Active Substance: CLARITHROMYCIN
     Dosage: 4.0 DOSAGE FORM, 1 EVERY 1 DAYS, DOSAGE FORM: NOT SPECIFIED
     Route: 048
  8. HYDROXYZINE [Interacting]
     Active Substance: HYDROXYZINE HYDROCHLORIDE
     Indication: Product used for unknown indication
     Dosage: 25.0 MILLIGRAM, 3 EVERY 1 DAYS
     Route: 065
  9. HYDROXYZINE [Interacting]
     Active Substance: HYDROXYZINE HYDROCHLORIDE
     Dosage: 75 MILLIGRAM, 1 EVERY 1 DAYS, DOSAGE FORM NOT SPECIFIED
     Route: 065
  10. XOLAIR [Interacting]
     Active Substance: OMALIZUMAB
     Indication: Urticaria
     Dosage: 300.0 MILLIGRAM, DOSAGE FORM: SOLUTION FOR INJECTION IN PRE-FILLED SYRINGE
     Route: 058
  11. XOLAIR [Interacting]
     Active Substance: OMALIZUMAB
     Indication: Chronic spontaneous urticaria
     Dosage: 300.0 MILLIGRAM, DOSAGE FORM: SOLUTION FOR INJECTION IN PRE-FILLED SYRINGE
     Route: 065
  12. XOLAIR [Interacting]
     Active Substance: OMALIZUMAB
     Dosage: 300.0 MILLIGRAM, DOSAGE FORM: SOLUTION FOR INJECTION IN PRE-FILLED SYRINGE
     Route: 058
  13. XOLAIR [Interacting]
     Active Substance: OMALIZUMAB
     Dosage: 300.0 MILLIGRAM, 1 EVERY 1 MONTH, DOSAGE FORM: SOLUTION FOR INJECTION IN PRE-FILLED SYRINGE
     Route: 058
  14. XOLAIR [Interacting]
     Active Substance: OMALIZUMAB
     Dosage: DOSAGE FORM: SOLUTION FOR INJECTION IN PRE-FILLED SYRINGE
     Route: 065
  15. XOLAIR [Interacting]
     Active Substance: OMALIZUMAB
     Dosage: 300.0 MILLIGRAM, DOSAGE FORM: NOT SPECIFIED
     Route: 058
  16. XOLAIR [Interacting]
     Active Substance: OMALIZUMAB
     Dosage: DOSAGE FORM: SOLUTION FOR INJECTION IN PRE-FILLED SYRINGE
     Route: 065
  17. XOLAIR [Interacting]
     Active Substance: OMALIZUMAB
     Dosage: 300.0 MILLIGRAM, 1 EVERY 1 MONTH, DOSAGE FORM: SOLUTION FOR INJECTION IN PRE-FILLED SYRINGE
     Route: 058
  18. XOLAIR [Interacting]
     Active Substance: OMALIZUMAB
     Dosage: 300.0 MILLIGRAM, DOSAGE FORM: SOLUTION FOR INJECTION IN PRE-FILLED SYRINGE
     Route: 058
  19. XOLAIR [Interacting]
     Active Substance: OMALIZUMAB
     Dosage: DOSAGE FORM: SOLUTION FOR INJECTION IN PRE-FILLED SYRINGE
     Route: 065
  20. XOLAIR [Interacting]
     Active Substance: OMALIZUMAB
     Dosage: 300.0 MILLIGRAM, 1 EVERY 1 MONTH, DOSAGE FORM: SOLUTION FOR INJECTION IN PRE-FILLED SYRINGE
     Route: 058
  21. XOLAIR [Interacting]
     Active Substance: OMALIZUMAB
     Dosage: 450.0 MILLIGRAM, 1 EVERY 1 MONTHS, DOSAGE FORM: SOLUTION FOR INJECTION IN PRE-FILLED SYRINGE
     Route: 058
  22. XOLAIR [Interacting]
     Active Substance: OMALIZUMAB
     Dosage: 450.0 MILLIGRAM, 1 EVERY 1 MONTHS, DOSAGE FORM: SOLUTION FOR INJECTION IN PRE-FILLED SYRINGE
     Route: 058
  23. XOLAIR [Interacting]
     Active Substance: OMALIZUMAB
     Dosage: 300.0 MILLIGRAM, 1 EVERY 1 MONTH, DOSAGE FORM: SOLUTION FOR INJECTION IN PRE-FILLED SYRINGE
     Route: 065
  24. XOLAIR [Interacting]
     Active Substance: OMALIZUMAB
     Dosage: 300.0 MILLIGRAM, 1 EVERY 1 MONTH, DOSAGE FORM: SOLUTION FOR INJECTION IN PRE-FILLED SYRINGE
     Route: 058
  25. XOLAIR [Interacting]
     Active Substance: OMALIZUMAB
     Dosage: 300.0 MILLIGRAM, DOSAGE FORM: SOLUTION FOR INJECTION IN PRE-FILLED SYRINGE
     Route: 065
  26. XOLAIR [Interacting]
     Active Substance: OMALIZUMAB
     Dosage: 300.0 MILLIGRAM, 1 EVERY 1 MONTH, DOSAGE FORM: SOLUTION FOR INJECTION IN PRE-FILLED SYRINGE
     Route: 058
  27. XOLAIR [Interacting]
     Active Substance: OMALIZUMAB
     Dosage: 300 MILLIGRAM, 1 EVERY 1 MONTH, DOSAGE FORM NOT SPECIFIED
     Route: 058
  28. PREDNISONE [Interacting]
     Active Substance: PREDNISONE
     Indication: Product used for unknown indication
     Dosage: 20.0 MILLIGRAM
     Route: 048
  29. PREDNISONE [Interacting]
     Active Substance: PREDNISONE
     Indication: Chronic spontaneous urticaria
     Dosage: 7.0 MILLIGRAM, 1 EVERY 1 DAYS, DOSAGE FROM: NOT SPECIFIED
     Route: 065
  30. PREDNISONE [Interacting]
     Active Substance: PREDNISONE
     Dosage: 2.0 MILLIGRAM, 1 EVERY 1 DAYS
     Route: 065
  31. PREDNISONE [Interacting]
     Active Substance: PREDNISONE
     Dosage: 25.0 MILLIGRAM
     Route: 048
  32. PREDNISONE [Interacting]
     Active Substance: PREDNISONE
     Dosage: 2.0 MILLIGRAM, 2 EVERY 1 DAYS
     Route: 065
  33. PREDNISONE [Interacting]
     Active Substance: PREDNISONE
     Dosage: UNK,DOSAGE FORM NOT SPECIFIED
     Route: 065
  34. RANITIDINE [Interacting]
     Active Substance: RANITIDINE
     Indication: Product used for unknown indication
     Dosage: 150.0 MILLIGRAM, 2 EVERY 1 DAYS
     Route: 065
  35. RANITIDINE [Interacting]
     Active Substance: RANITIDINE
     Dosage: 300 MILLIGRAM,1 EVERY 1 DAYS, DOSAGE FORM NOT SPECIFIED
     Route: 065
  36. RUPATADINE [Suspect]
     Active Substance: RUPATADINE
     Indication: Chronic spontaneous urticaria
     Dosage: 2 DOSAGE FORM,  1 EVERY 1 DAYS
     Route: 065
  37. CYCLOSPORINE [Concomitant]
     Active Substance: CYCLOSPORINE
     Indication: Chronic spontaneous urticaria
     Dosage: 25.0 MILLIGRAM
     Route: 048
  38. CYCLOSPORINE [Concomitant]
     Active Substance: CYCLOSPORINE
     Dosage: 25.0 MILLIGRAM , 2 EVERY1DAY; DOSAGE FORM: NOT SPECIFIED
     Route: 048
  39. CYCLOSPORINE [Concomitant]
     Active Substance: CYCLOSPORINE
     Dosage: 1.0 DOSAGE FORM
     Route: 048
  40. CYCLOSPORINE [Concomitant]
     Active Substance: CYCLOSPORINE
     Dosage: UNK
     Route: 065
  41. HYDROXYZINE [Concomitant]
     Active Substance: HYDROXYZINE HYDROCHLORIDE
     Indication: Chronic spontaneous urticaria
     Dosage: 1.0 DOSAGE FORM
     Route: 065
  42. METHOTREXATE [Concomitant]
     Active Substance: METHOTREXATE
     Indication: Product used for unknown indication
     Dosage: 1.0 DOSAGE FORM; DOSAGE FORM: NOT SPECIFIED
     Route: 065
  43. QUETIAPINE [Concomitant]
     Active Substance: QUETIAPINE
     Indication: Product used for unknown indication
     Dosage: UNK
     Route: 065
  44. RUPATADINE FUMARATE [Concomitant]
     Active Substance: RUPATADINE FUMARATE
     Indication: Chronic spontaneous urticaria
     Dosage: 1.0 DOSAGE FORM, 2 EVERY 1 DAYS
     Route: 048
  45. ATARAX [Concomitant]
     Active Substance: HYDROXYZINE HYDROCHLORIDE
     Dosage: STRENGTH:2MG/ML

REACTIONS (51)
  - Abdominal pain [Not Recovered/Not Resolved]
  - Abnormal dreams [Not Recovered/Not Resolved]
  - Adverse drug reaction [Not Recovered/Not Resolved]
  - Angioedema [Not Recovered/Not Resolved]
  - Anxiety [Not Recovered/Not Resolved]
  - Arthralgia [Not Recovered/Not Resolved]
  - Back pain [Not Recovered/Not Resolved]
  - Chronic spontaneous urticaria [Not Recovered/Not Resolved]
  - Constipation [Not Recovered/Not Resolved]
  - Discomfort [Not Recovered/Not Resolved]
  - Drug hypersensitivity [Not Recovered/Not Resolved]
  - Drug ineffective [Not Recovered/Not Resolved]
  - Drug interaction [Not Recovered/Not Resolved]
  - Drug intolerance [Not Recovered/Not Resolved]
  - Dry eye [Not Recovered/Not Resolved]
  - Dry mouth [Not Recovered/Not Resolved]
  - Dry skin [Not Recovered/Not Resolved]
  - Emotional disorder [Not Recovered/Not Resolved]
  - Fatigue [Not Recovered/Not Resolved]
  - Frustration tolerance decreased [Not Recovered/Not Resolved]
  - Gait disturbance [Not Recovered/Not Resolved]
  - General physical health deterioration [Not Recovered/Not Resolved]
  - Grip strength decreased [Not Recovered/Not Resolved]
  - Headache [Not Recovered/Not Resolved]
  - Heart rate increased [Not Recovered/Not Resolved]
  - Hypoaesthesia [Not Recovered/Not Resolved]
  - Illness [Not Recovered/Not Resolved]
  - Incorrect dose administered [Not Recovered/Not Resolved]
  - Insomnia [Not Recovered/Not Resolved]
  - Lacrimation increased [Not Recovered/Not Resolved]
  - Lip swelling [Not Recovered/Not Resolved]
  - Malaise [Not Recovered/Not Resolved]
  - Mania [Not Recovered/Not Resolved]
  - Mouth ulceration [Not Recovered/Not Resolved]
  - Nausea [Not Recovered/Not Resolved]
  - Pain [Not Recovered/Not Resolved]
  - Pain in extremity [Not Recovered/Not Resolved]
  - Pain in jaw [Not Recovered/Not Resolved]
  - Paraesthesia [Not Recovered/Not Resolved]
  - Pigmentation disorder [Not Recovered/Not Resolved]
  - Pruritus [Not Recovered/Not Resolved]
  - Sedation [Not Recovered/Not Resolved]
  - Swelling face [Not Recovered/Not Resolved]
  - Swollen tongue [Not Recovered/Not Resolved]
  - Tension [Not Recovered/Not Resolved]
  - Throat tightness [Not Recovered/Not Resolved]
  - Tremor [Not Recovered/Not Resolved]
  - Urticaria [Not Recovered/Not Resolved]
  - Vision blurred [Not Recovered/Not Resolved]
  - Lip swelling [Not Recovered/Not Resolved]
  - Swelling face [Not Recovered/Not Resolved]
